FAERS Safety Report 4970430-8 (Version None)
Quarter: 2006Q2

REPORT INFORMATION
  Report Type: 
  Country: None (occurrence: None)
  Receive Date: 20060406
  Receipt Date: 20060323
  Transmission Date: 20061013
  Serious: Yes (Death, Life-Threatening, Other)
  Sender: FDA-Public Use
  Company Number: AT200603006340

PATIENT
  Age: 67 Year
  Sex: Male

DRUGS (4)
  1. ALIMTA [Suspect]
     Indication: PLEURAL MESOTHELIOMA
     Dosage: 900 MG, OTHER, INTRAVENOUS
     Dates: start: 20060318
  2. CISPLATIN [Concomitant]
  3. PROGRAF [Concomitant]
  4. MYFORTIC (MYCOPHENOLATE SODIUM) [Concomitant]

REACTIONS (2)
  - GASTROINTESTINAL INFECTION [None]
  - SEPTIC SHOCK [None]
